FAERS Safety Report 5190443-3 (Version None)
Quarter: 2006Q4

REPORT INFORMATION
  Report Type: 
  Country: None (occurrence: None)
  Receive Date: 20061222
  Receipt Date: 20061212
  Transmission Date: 20070319
  Serious: Yes (Hospitalization)
  Sender: FDA-Public Use
  Company Number: US-AMGEN-STX203537

PATIENT
  Sex: Female

DRUGS (2)
  1. ENBREL [Suspect]
     Indication: RHEUMATOID ARTHRITIS
     Route: 058
     Dates: start: 19981219
  2. METHOTREXATE [Concomitant]
     Route: 065

REACTIONS (4)
  - CYST [None]
  - JOINT ARTHROPLASTY [None]
  - KNEE ARTHROPLASTY [None]
  - SURGERY [None]
